FAERS Safety Report 21450424 (Version 1)
Quarter: 2022Q4

REPORT INFORMATION
  Report Type: Spontaneous
  Country: US (occurrence: US)
  Receive Date: 20221013
  Receipt Date: 20221013
  Transmission Date: 20230112
  Serious: No
  Sender: FDA-Public Use
  Company Number: US-LUPIN PHARMACEUTICALS INC.-2022-11895

PATIENT
  Age: 28 Year
  Sex: Female
  Weight: 90.703 kg

DRUGS (1)
  1. BUDESONIDE [Suspect]
     Active Substance: BUDESONIDE
     Indication: Rhinitis
     Dosage: UNK, QD, SINGLE-DOSE AMPULES
     Dates: start: 20220913, end: 20220927

REACTIONS (3)
  - Rash [Recovered/Resolved]
  - Sinusitis [Recovered/Resolved]
  - Tonsillar hypertrophy [Recovered/Resolved]

NARRATIVE: CASE EVENT DATE: 20220927
